FAERS Safety Report 8424918-8 (Version None)
Quarter: 2012Q2

REPORT INFORMATION
  Report Type: 
  Country: None (occurrence: None)
  Receive Date: 20120611
  Receipt Date: 20120605
  Transmission Date: 20120825
  Serious: Yes (Other)
  Sender: FDA-Public Use
  Company Number: US-PFIZER INC-2012135444

PATIENT
  Sex: Male
  Weight: 77.1 kg

DRUGS (2)
  1. EFFEXOR XR [Suspect]
     Indication: ANXIETY
     Dosage: UNK
     Route: 048
     Dates: start: 20030101
  2. EFFEXOR XR [Suspect]
     Dosage: 75 MG, 1X/DAY
     Route: 048

REACTIONS (2)
  - BLOOD CHOLESTEROL INCREASED [None]
  - DIABETES MELLITUS [None]
